FAERS Safety Report 11357285 (Version 1)
Quarter: 2015Q3

REPORT INFORMATION
  Report Type: Spontaneous
  Country: US (occurrence: US)
  Receive Date: 20150803
  Receipt Date: 20150803
  Transmission Date: 20151125
  Serious: No
  Sender: FDA-Public Use
  Company Number: US-ELI_LILLY_AND_COMPANY-US201205006855

PATIENT
  Sex: Male

DRUGS (2)
  1. ZYPREXA [Suspect]
     Active Substance: OLANZAPINE
     Dosage: 15 MG, QD
  2. ZYPREXA [Suspect]
     Active Substance: OLANZAPINE
     Dosage: 0.5 DF, QD

REACTIONS (4)
  - Mental disorder [Not Recovered/Not Resolved]
  - Drug dose omission [Unknown]
  - Wrong technique in product usage process [Unknown]
  - Anxiety [Not Recovered/Not Resolved]
